FAERS Safety Report 8407473-8 (Version None)
Quarter: 2012Q2

REPORT INFORMATION
  Report Type: 
  Country: None (occurrence: None)
  Receive Date: 20120604
  Receipt Date: 20120525
  Transmission Date: 20120825
  Serious: Yes (Hospitalization, Congenital Anomaly, Other)
  Sender: FDA-Public Use
  Company Number: US-PFIZER INC-2012128709

PATIENT
  Sex: Male
  Weight: 2.8 kg

DRUGS (8)
  1. FLONASE [Concomitant]
     Dosage: TWO SPARYS IN EACH NOSTRIL DAILY
     Route: 064
  2. LORATADINE [Concomitant]
     Dosage: 10 MG, DAILY
     Route: 064
  3. MAGNESIUM [Concomitant]
     Dosage: 27 MG, DAILY
     Route: 064
  4. ZOLOFT [Suspect]
     Dosage: 100 MG,DAILY
     Route: 064
     Dates: start: 20070206
  5. IRON [Concomitant]
     Dosage: UNK, ONE TABLET DAILY
     Route: 064
  6. MULTI-VITAMINS [Concomitant]
     Dosage: DAILY
     Route: 064
  7. ZOLOFT [Suspect]
     Indication: DEPRESSION
     Dosage: 50 MG, DAILY
     Route: 064
     Dates: start: 20060427
  8. CLARITIN [Concomitant]
     Route: 064

REACTIONS (29)
  - PULMONARY OEDEMA [None]
  - CARDIAC FAILURE [None]
  - HYDRONEPHROSIS [None]
  - GASTROOESOPHAGEAL REFLUX DISEASE [None]
  - VISUAL IMPAIRMENT [None]
  - GLOSSOPTOSIS [None]
  - CRYPTORCHISM [None]
  - PATENT DUCTUS ARTERIOSUS [None]
  - DYSMORPHISM [None]
  - PIERRE ROBIN SYNDROME [None]
  - FAILURE TO THRIVE [None]
  - RIGHT VENTRICULAR HYPERTROPHY [None]
  - CLEFT PALATE [None]
  - NEPHROLITHIASIS [None]
  - SPINE MALFORMATION [None]
  - COARCTATION OF THE AORTA [None]
  - ATRIAL SEPTAL DEFECT [None]
  - MICROGNATHIA [None]
  - HYPERTENSION NEONATAL [None]
  - CHARGE SYNDROME [None]
  - MATERNAL EXPOSURE TIMING UNSPECIFIED [None]
  - TALIPES [None]
  - LARYNGEAL STENOSIS [None]
  - RIGHT ATRIAL DILATATION [None]
  - EAR MALFORMATION [None]
  - CHORDEE [None]
  - NEONATAL RESPIRATORY DISTRESS SYNDROME [None]
  - CONGENITAL CENTRAL NERVOUS SYSTEM ANOMALY [None]
  - DEVELOPMENTAL DELAY [None]
